FAERS Safety Report 5282619-1 (Version None)
Quarter: 2007Q1

REPORT INFORMATION
  Report Type: 
  Country: None (occurrence: None)
  Receive Date: 20070331
  Receipt Date: 20070323
  Transmission Date: 20070707
  Serious: Yes (Death, Life-Threatening)
  Sender: FDA-Public Use
  Company Number: CN-SHR-CN-2007-010212

PATIENT
  Age: 45 Year
  Sex: Female

DRUGS (1)
  1. ULTRAVIST 370 [Suspect]
     Dosage: 100 ML, 1 DOSE
     Route: 040
     Dates: start: 20070323, end: 20070323

REACTIONS (4)
  - COUGH [None]
  - DEATH [None]
  - DYSPNOEA [None]
  - PULSE PRESSURE DECREASED [None]
